FAERS Safety Report 5692455-X (Version None)
Quarter: 2008Q2

REPORT INFORMATION
  Report Type: 
  Country: None (occurrence: None)
  Receive Date: 20080402
  Receipt Date: 20070911
  Transmission Date: 20081010
  Serious: Yes (Other)
  Sender: FDA-Public Use
  Company Number: US-BAYER-US-2007-034157

PATIENT
  Age: 59 Year
  Sex: Female
  Weight: 75 kg

DRUGS (3)
  1. LEUKINE [Suspect]
     Indication: NEUTROPENIA
     Route: 058
     Dates: start: 20070910, end: 20070910
  2. EFFEXOR XR [Concomitant]
     Dosage: UNIT DOSE: 75 MG
     Route: 048
  3. GABAPENTIN [Concomitant]
     Dosage: UNIT DOSE: 300 MG
     Route: 048

REACTIONS (8)
  - ABDOMINAL PAIN [None]
  - CHEST PAIN [None]
  - DEPRESSED LEVEL OF CONSCIOUSNESS [None]
  - DIARRHOEA [None]
  - FLUSHING [None]
  - NAUSEA [None]
  - SYNCOPE [None]
  - VOMITING [None]
